FAERS Safety Report 9320411 (Version 2)
Quarter: 2013Q4

REPORT INFORMATION
  Report Type: Spontaneous
  Country: US (occurrence: US)
  Receive Date: 20130530
  Receipt Date: 20131011
  Transmission Date: 20140711
  Serious: Yes (Hospitalization)
  Sender: FDA-Public Use
  Company Number: US-B.I. PHARMACEUTICALS,INC./RIDGEFIELD-2013-BI-14572BP

PATIENT
  Age: 76 Year
  Sex: Female
  Weight: 52.16 kg

DRUGS (10)
  1. PRADAXA [Suspect]
     Indication: ATRIAL FIBRILLATION
     Dosage: 300 MG
     Route: 048
     Dates: start: 20110805, end: 20110809
  2. CALCITONIN [Concomitant]
     Route: 055
  3. CRESTOR [Concomitant]
     Dosage: 20 MG
     Route: 048
  4. DIGOXIN [Concomitant]
  5. ISOSORBIDE DINITRATE [Concomitant]
     Dosage: 30 MG
     Route: 048
  6. METOPROLOL TARTRATE [Concomitant]
     Dosage: 50 MG
     Route: 048
     Dates: start: 200503
  7. NITRODISC [Concomitant]
     Route: 062
     Dates: start: 200706
  8. PLAVIX [Concomitant]
     Dosage: 75 MG
     Route: 048
     Dates: start: 200501
  9. SOTALOL [Concomitant]
     Dosage: 160 MG
     Route: 048
  10. TRICOR [Concomitant]
     Dates: start: 2010

REACTIONS (3)
  - Arteriovenous fistula site haemorrhage [Unknown]
  - Haematoma [Unknown]
  - Haemorrhagic anaemia [Unknown]
